FAERS Safety Report 6421689-1 (Version None)
Quarter: 2009Q4

REPORT INFORMATION
  Report Type: 
  Country: None (occurrence: None)
  Receive Date: 20091030
  Receipt Date: 20090929
  Transmission Date: 20100525
  Serious: No
  Sender: FDA-Public Use
  Company Number: US-BAYER-200915108BCC

PATIENT
  Age: 75 Year
  Sex: Female
  Weight: 61 kg

DRUGS (6)
  1. ALEVE [Suspect]
     Indication: ARTHRALGIA
     Dosage: TOTAL DAILY DOSE: 220 MG  UNIT DOSE: 220 MG
     Route: 048
  2. ALEVE [Suspect]
     Dosage: TOTAL DAILY DOSE: 440 MG  UNIT DOSE: 220 MG
     Route: 048
  3. SYNTHROID [Concomitant]
     Route: 065
  4. SINGULAIR [Concomitant]
     Route: 065
  5. FLOVENT [Concomitant]
     Route: 065
  6. NABUMETONE [Concomitant]
     Route: 065

REACTIONS (2)
  - CONTUSION [None]
  - FAECES DISCOLOURED [None]
